FAERS Safety Report 6321133-9 (Version None)
Quarter: 2009Q3

REPORT INFORMATION
  Report Type: 
  Country: None (occurrence: None)
  Receive Date: 20090822
  Receipt Date: 20090210
  Transmission Date: 20100115
  Serious: No
  Sender: FDA-Public Use
  Company Number: US-ABBOTT-08P-163-0449307-00

PATIENT
  Sex: Male
  Weight: 75.818 kg

DRUGS (3)
  1. NIASPAN [Suspect]
     Indication: BLOOD CHOLESTEROL
     Route: 048
     Dates: start: 20071201, end: 20081101
  2. NIASPAN [Suspect]
     Dosage: WHITE-NON COATED
     Route: 048
  3. CARDURA [Concomitant]
     Indication: BLOOD PRESSURE MANAGEMENT

REACTIONS (3)
  - LOW DENSITY LIPOPROTEIN INCREASED [None]
  - PRURITUS [None]
  - RASH [None]
